FAERS Safety Report 17726568 (Version 4)
Quarter: 2021Q4

REPORT INFORMATION
  Report Type: Other
  Country: US (occurrence: None)
  Receive Date: 20200430
  Receipt Date: 20211217
  Transmission Date: 20220303
  Serious: Yes (Other)
  Sender: FDA-Public Use
  Company Number: US-ROCHE-2355580

PATIENT
  Age: 67 Year
  Sex: Female
  Weight: 74.456 kg

DRUGS (4)
  1. OCREVUS [Suspect]
     Active Substance: OCRELIZUMAB
     Indication: Relapsing multiple sclerosis
     Dosage: DATE OF TREATMENT: 06/MAY/2021, 22/NOV/2021
     Route: 065
     Dates: start: 20180801
  2. OCREVUS [Suspect]
     Active Substance: OCRELIZUMAB
     Indication: Multiple sclerosis
  3. KESIMPTA [Suspect]
     Active Substance: OFATUMUMAB
     Indication: Multiple sclerosis
     Dosage: ONGOING NO?2 SHOTS PER MONTH ON 1 MONTH AT SOME POINT
     Route: 065
     Dates: start: 202011, end: 202101
  4. SOLU-MEDROL [Concomitant]
     Active Substance: METHYLPREDNISOLONE SODIUM SUCCINATE

REACTIONS (12)
  - Urinary tract infection [Recovered/Resolved]
  - Multiple sclerosis [Not Recovered/Not Resolved]
  - Therapeutic response shortened [Unknown]
  - Feeling abnormal [Unknown]
  - Fall [Unknown]
  - Dizziness [Recovering/Resolving]
  - Hypoaesthesia [Unknown]
  - Headache [Unknown]
  - Fatigue [Unknown]
  - Ulcer [Recovered/Resolved]
  - Plicated tongue [Recovered/Resolved]
  - Stomatitis [Unknown]

NARRATIVE: CASE EVENT DATE: 20200304
